FAERS Safety Report 4484509-0 (Version None)
Quarter: 2004Q3

REPORT INFORMATION
  Report Type: 
  Country: None (occurrence: None)
  Receive Date: 20040921
  Receipt Date: 20040317
  Transmission Date: 20050211
  Serious: Yes (Death)
  Sender: FDA-Public Use
  Company Number: 163-20785-04010197

PATIENT
  Age: 38 Year
  Sex: Male

DRUGS (2)
  1. THALOMID [Suspect]
     Indication: METASTATIC MALIGNANT MELANOMA
     Dosage: SEE IMAGE
     Route: 048
     Dates: start: 20030929, end: 20031005
  2. THALOMID [Suspect]
     Indication: METASTATIC MALIGNANT MELANOMA
     Dosage: SEE IMAGE
     Route: 048
     Dates: start: 20031006, end: 20031113

REACTIONS (3)
  - CEREBELLAR HAEMORRHAGE [None]
  - DEATH [None]
  - DISEASE PROGRESSION [None]
